FAERS Safety Report 10846331 (Version 2)
Quarter: 2015Q1

REPORT INFORMATION
  Report Type: Report from Study
  Country: US (occurrence: US)
  Receive Date: 20150220
  Receipt Date: 20150318
  Transmission Date: 20150721
  Serious: Yes (Other)
  Sender: FDA-Public Use
  Company Number: PHEH2015US003229

PATIENT
  Sex: Female

DRUGS (1)
  1. GILENYA [Suspect]
     Active Substance: FINGOLIMOD HYDROCHLORIDE
     Indication: MULTIPLE SCLEROSIS
     Dosage: 0.5 MG, QD
     Route: 048

REACTIONS (7)
  - Seizure [Unknown]
  - Amnesia [Unknown]
  - Headache [Unknown]
  - Pyrexia [Unknown]
  - Malaise [Unknown]
  - Pain [Unknown]
  - Rectal polyp [Unknown]
